FAERS Safety Report 9839411 (Version 2)
Quarter: 2014Q1

REPORT INFORMATION
  Report Type: Spontaneous
  Country: US (occurrence: US)
  Receive Date: 20140123
  Receipt Date: 20140214
  Transmission Date: 20141002
  Serious: No
  Sender: FDA-Public Use
  Company Number: US-009507513-1401USA010268

PATIENT
  Sex: Male

DRUGS (6)
  1. DULERA [Suspect]
     Indication: ASTHMA
     Dosage: 2 PUFFS TWICE A DAY
     Route: 055
     Dates: start: 2011
  2. DULERA [Suspect]
     Indication: EMPHYSEMA
     Dosage: 2 PUFFS TWICE A DAY
     Route: 055
  3. VENTOLIN (ALBUTEROL) [Concomitant]
  4. PRILOSEC [Concomitant]
     Route: 048
  5. HYDROCHLOROTHIAZIDE (+) TRIAMTERENE [Concomitant]
  6. ASPIRIN [Concomitant]
     Route: 048

REACTIONS (3)
  - Dyspnoea [Recovered/Resolved]
  - Drug dose omission [Unknown]
  - Product quality issue [Unknown]
